FAERS Safety Report 23185187 (Version 2)
Quarter: 2023Q4

REPORT INFORMATION
  Report Type: Report from Study
  Country: JP (occurrence: JP)
  Receive Date: 20231115
  Receipt Date: 20231208
  Transmission Date: 20240110
  Serious: Yes (Death)
  Sender: FDA-Public Use
  Company Number: JP-NBI-BJ202318957

PATIENT
  Age: 75 Year
  Sex: Female

DRUGS (2)
  1. OFEV [Suspect]
     Active Substance: NINTEDANIB
     Indication: Interstitial lung disease
     Route: 048
     Dates: start: 20210526, end: 202106
  2. OFEV [Suspect]
     Active Substance: NINTEDANIB
     Route: 048
     Dates: start: 202106, end: 202303

REACTIONS (2)
  - Interstitial lung disease [Fatal]
  - Diarrhoea [Recovered/Resolved]

NARRATIVE: CASE EVENT DATE: 20210601
